FAERS Safety Report 8557830-4 (Version None)
Quarter: 2012Q3

REPORT INFORMATION
  Report Type: 
  Country: None (occurrence: None)
  Receive Date: 20120801
  Receipt Date: 20120727
  Transmission Date: 20120928
  Serious: Yes (Death, Hospitalization)
  Sender: FDA-Public Use
  Company Number: US-GLAXOSMITHKLINE-A0982475A

PATIENT
  Age: 59 Year
  Sex: Female
  Weight: 63.2 kg

DRUGS (11)
  1. ALPRAZOLAM [Concomitant]
     Dosage: .25MG FOUR TIMES PER DAY
  2. ADVAIR HFA [Suspect]
     Indication: CHRONIC OBSTRUCTIVE PULMONARY DISEASE
     Dosage: 1PUFF TWICE PER DAY
     Route: 055
     Dates: start: 20080101
  3. ATROVENT [Concomitant]
     Dosage: 2PUFF TWICE PER DAY
     Route: 055
  4. THEOPHYLLINE [Concomitant]
     Dosage: 200MGD PER DAY
  5. ALBUTEROL [Concomitant]
  6. BUSPIRONE HCL [Concomitant]
     Dosage: 10MG TWICE PER DAY
  7. ADVAIR HFA [Suspect]
     Dosage: 2PUFF TWICE PER DAY
     Route: 055
     Dates: start: 20111101
  8. LEVAQUIN [Concomitant]
  9. NYSTATIN [Concomitant]
  10. SYMBICORT [Concomitant]
     Dosage: 2PUFF TWICE PER DAY
     Route: 055
  11. SINGULAIR [Concomitant]
     Dosage: 10MGD PER DAY

REACTIONS (10)
  - RESPIRATORY FAILURE [None]
  - OVARIAN CYST [None]
  - SPUTUM DISCOLOURED [None]
  - CHRONIC OBSTRUCTIVE PULMONARY DISEASE [None]
  - ANXIETY [None]
  - PRODUCTIVE COUGH [None]
  - DEATH [None]
  - DYSPNOEA [None]
  - PYREXIA [None]
  - RHINORRHOEA [None]
